FAERS Safety Report 17780101 (Version 1)
Quarter: 2020Q2

REPORT INFORMATION
  Report Type: Spontaneous
  Country: FR (occurrence: FR)
  Receive Date: 20200514
  Receipt Date: 20200514
  Transmission Date: 20200714
  Serious: Yes (Hospitalization)
  Sender: FDA-Public Use
  Company Number: FR-SUN PHARMACEUTICAL INDUSTRIES LTD-2020RR-247045

PATIENT
  Age: 81 Year
  Sex: Male

DRUGS (6)
  1. DUOPLAVIN 75 MG/75 MG, COMPRIME PELLICULE [Concomitant]
     Active Substance: ASPIRIN\CLOPIDOGREL
     Indication: THROMBOSIS PROPHYLAXIS
     Dosage: 1 DOSAGE FORM, DAILY
     Route: 048
  2. AMLODIPINE [Concomitant]
     Active Substance: AMLODIPINE BESYLATE
     Indication: HYPERTENSION
     Dosage: 5 MILLIGRAM, DAILY
     Route: 048
  3. CLARITHROMYCIN. [Suspect]
     Active Substance: CLARITHROMYCIN
     Indication: PRODUCT USED FOR UNKNOWN INDICATION
     Dosage: INCONNUE
     Route: 048
     Dates: start: 20200227, end: 20200326
  4. BISOPROLOL (FUMARATE ACIDE DE) [Concomitant]
     Active Substance: BISOPROLOL FUMARATE
     Indication: PRODUCT USED FOR UNKNOWN INDICATION
     Dosage: 10 KILO-INTERNATIONAL UNIT, DAILY
     Route: 048
  5. RABEPRAZOLE [Interacting]
     Active Substance: RABEPRAZOLE
     Indication: PROPHYLAXIS AGAINST GASTROINTESTINAL ULCER
     Dosage: 20 MILLIGRAMS, DAILY
     Route: 048
  6. ATORVASTATINE [Concomitant]
     Active Substance: ATORVASTATIN
     Indication: HYPERCHOLESTEROLAEMIA
     Dosage: 20 MILLIGRAM, DAILY
     Route: 048

REACTIONS (4)
  - Primary hypoparathyroidism [Recovering/Resolving]
  - Hypocalcaemia [Recovered/Resolved]
  - Hypomagnesaemia [Recovering/Resolving]
  - Seizure [Recovered/Resolved]

NARRATIVE: CASE EVENT DATE: 202004
